FAERS Safety Report 6828069-5 (Version None)
Quarter: 2010Q3

REPORT INFORMATION
  Report Type: 
  Country: None (occurrence: None)
  Receive Date: 20100709
  Receipt Date: 20100624
  Transmission Date: 20110219
  Serious: Yes (Hospitalization, Congenital Anomaly, Other)
  Sender: FDA-Public Use
  Company Number: B0664575A

PATIENT
  Sex: Female

DRUGS (1)
  1. PAROXETINE HCL [Suspect]

REACTIONS (22)
  - ATRIAL SEPTAL DEFECT [None]
  - CARDIO-RESPIRATORY DISTRESS [None]
  - CONGENITAL NOSE MALFORMATION [None]
  - DEVELOPMENTAL DELAY [None]
  - DRUG EXPOSURE DURING PREGNANCY [None]
  - DYSPNOEA [None]
  - EXOPHTHALMOS [None]
  - FEELING JITTERY [None]
  - HYPERTELORISM OF ORBIT [None]
  - HYPOTONIA NEONATAL [None]
  - IRRITABILITY [None]
  - JOINT HYPEREXTENSION [None]
  - NASAL CONGESTION [None]
  - NEUROLOGICAL SYMPTOM [None]
  - PREMATURE BABY [None]
  - PREMATURE RUPTURE OF MEMBRANES [None]
  - PULMONARY VALVE STENOSIS CONGENITAL [None]
  - SINGLE UMBILICAL ARTERY [None]
  - SMALL FOR DATES BABY [None]
  - TACHYPNOEA [None]
  - TWIN PREGNANCY [None]
  - USE OF ACCESSORY RESPIRATORY MUSCLES [None]
